FAERS Safety Report 7239588-4 (Version None)
Quarter: 2011Q1

REPORT INFORMATION
  Report Type: 
  Country: None (occurrence: None)
  Receive Date: 20110122
  Receipt Date: 20110110
  Transmission Date: 20110831
  Serious: Yes (Other)
  Sender: FDA-Public Use
  Company Number: ES-RANBAXY-2010RR-40814

PATIENT
  Age: 18 Year
  Sex: Female
  Weight: 48 kg

DRUGS (2)
  1. PARACETAMOL [Suspect]
     Dosage: 1 G, UNK
  2. IBUPROFEN [Suspect]
     Dosage: 600 MG, UNK

REACTIONS (3)
  - BRONCHOSPASM [None]
  - HYPOSMIA [None]
  - RESPIRATORY DISORDER [None]
